FAERS Safety Report 18366828 (Version 2)
Quarter: 2020Q4

REPORT INFORMATION
  Report Type: Report from Study
  Country: ES (occurrence: ES)
  Receive Date: 20201009
  Receipt Date: 20201020
  Transmission Date: 20210114
  Serious: Yes (Death, Hospitalization)
  Sender: FDA-Public Use
  Company Number: ES-PFIZER INC-2020384711

PATIENT
  Age: 69 Year
  Sex: Female

DRUGS (2)
  1. PREDNISOLONE. [Suspect]
     Active Substance: PREDNISOLONE
     Indication: SYSTEMIC LUPUS ERYTHEMATOSUS
     Dosage: 7.5 MG, 1X/DAY
  2. RITUXIMAB. [Suspect]
     Active Substance: RITUXIMAB
     Indication: SYSTEMIC LUPUS ERYTHEMATOSUS
     Dosage: 1G / 15 DAYS / 6 MONTHS OR 375 M2/WEEK X 4

REACTIONS (4)
  - Off label use [Fatal]
  - Acute respiratory distress syndrome [Fatal]
  - COVID-19 [Fatal]
  - Condition aggravated [Fatal]
